FAERS Safety Report 11734566 (Version 1)
Quarter: 2015Q4

REPORT INFORMATION
  Report Type: Spontaneous
  Country: None (occurrence: US)
  Receive Date: 20151113
  Receipt Date: 20151113
  Transmission Date: 20160304
  Serious: No
  Sender: FDA-Public Use
  Company Number: US-GUERBET LLC-1044157

PATIENT
  Age: 83 Year
  Sex: Male
  Weight: 72.48 kg

DRUGS (3)
  1. OXILAN [Suspect]
     Active Substance: IOXILAN
     Indication: CATHETERISATION CARDIAC
     Dates: start: 20070725, end: 20070725
  2. FENTANYL. [Concomitant]
     Active Substance: FENTANYL
  3. VERSED(MIDAZOLAM) [Concomitant]

REACTIONS (1)
  - Pruritus [Recovered/Resolved]

NARRATIVE: CASE EVENT DATE: 20070725
